FAERS Safety Report 4745495-9 (Version None)
Quarter: 2005Q3

REPORT INFORMATION
  Report Type: 
  Country: None (occurrence: None)
  Receive Date: 20050815
  Receipt Date: 20050318
  Transmission Date: 20060218
  Serious: Yes (Other)
  Sender: FDA-Public Use
  Company Number: US-MERCK-0503USA03807

PATIENT
  Age: 73 Year
  Sex: Female
  Weight: 73 kg

DRUGS (4)
  1. VIOXX [Suspect]
     Indication: RHEUMATOID ARTHRITIS
     Route: 048
     Dates: start: 20031212, end: 20040303
  2. CALAN [Concomitant]
     Indication: CLUSTER HEADACHE
     Route: 065
     Dates: start: 19940101, end: 20040217
  3. ACETAZOLAMIDE [Concomitant]
     Route: 065
  4. TIMOPTIC [Concomitant]
     Route: 065
     Dates: start: 19900101

REACTIONS (3)
  - HYPERTENSION [None]
  - MYOCARDIAL INFARCTION [None]
  - SLEEP DISORDER [None]
